FAERS Safety Report 9860000 (Version 2)
Quarter: 2014Q2

REPORT INFORMATION
  Report Type: Spontaneous
  Country: FR (occurrence: FR)
  Receive Date: 20140131
  Receipt Date: 20140513
  Transmission Date: 20141212
  Serious: Yes (Hospitalization)
  Sender: FDA-Public Use
  Company Number: FR-ASTRAZENECA-2014SE05490

PATIENT
  Age: 23830 Day
  Sex: Male

DRUGS (14)
  1. BRILIQUE [Suspect]
     Indication: ACUTE CORONARY SYNDROME
     Route: 048
     Dates: start: 201311, end: 20131218
  2. KARDEGIC [Interacting]
     Indication: CAROTID ENDARTERECTOMY
     Route: 048
     Dates: start: 200608, end: 20131218
  3. KARDEGIC [Interacting]
     Indication: CAROTID ENDARTERECTOMY
     Route: 042
     Dates: start: 20131222
  4. HEPARIN [Concomitant]
     Route: 042
  5. ESOMEPRAZOLE [Concomitant]
  6. TEMERIT [Concomitant]
  7. CORTANCYL [Concomitant]
  8. CALCIDIA [Concomitant]
  9. PARACETAMOL [Concomitant]
     Dosage: 1 G 4 TIMES A DAY IF NEEDED
  10. OXYNORM [Concomitant]
  11. KAYEXALATE [Concomitant]
     Dosage: 1 SPOON AT MORNING IF NO DIALYSIS
  12. TAHOR [Concomitant]
  13. FLODIL [Concomitant]
  14. NOVONORM [Concomitant]

REACTIONS (2)
  - Drug interaction [Recovered/Resolved]
  - Epistaxis [Recovered/Resolved]
